FAERS Safety Report 19846118 (Version 1)
Quarter: 2021Q3

REPORT INFORMATION
  Report Type: Spontaneous
  Country: US (occurrence: US)
  Receive Date: 20210915
  Receipt Date: 20210915
  Transmission Date: 20211014
  Serious: No
  Sender: FDA-Public Use
  Company Number: None

PATIENT
  Age: 83 Year
  Sex: Male
  Weight: 158 kg

DRUGS (1)
  1. CIPROFLOXACIN (CIPROFLOXACIN HCL 500MG TAB) [Suspect]
     Active Substance: CIPROFLOXACIN HYDROCHLORIDE
     Indication: OSTEOMYELITIS
     Route: 048
     Dates: start: 20210521

REACTIONS (4)
  - Similar reaction on previous exposure to drug [None]
  - Throat tightness [None]
  - Dysphagia [None]
  - Anaphylactic reaction [None]

NARRATIVE: CASE EVENT DATE: 20210522
